FAERS Safety Report 14807507 (Version 7)
Quarter: 2018Q3

REPORT INFORMATION
  Report Type: Spontaneous
  Country: IT (occurrence: IT)
  Receive Date: 20180425
  Receipt Date: 20180906
  Transmission Date: 20181010
  Serious: Yes (Life-Threatening, Other)
  Sender: FDA-Public Use
  Company Number: IT-PFIZER INC-2018113974

PATIENT
  Age: 57 Year
  Sex: Male
  Weight: 74 kg

DRUGS (3)
  1. BUPRENORPHINE. [Interacting]
     Active Substance: BUPRENORPHINE
     Indication: BACK PAIN
     Dosage: 1 DF, CYCLIC
     Route: 062
     Dates: start: 20180204, end: 20180213
  2. LINEZOLID. [Suspect]
     Active Substance: LINEZOLID
     Indication: INTERVERTEBRAL DISCITIS
     Dosage: 1200 MG, ONCE DAILY
     Route: 042
     Dates: start: 20180131, end: 20180213
  3. CUBICIN [Interacting]
     Active Substance: DAPTOMYCIN
     Dosage: 350 MG, UNK
     Dates: start: 20180119, end: 20180213

REACTIONS (2)
  - Lactic acidosis [Recovering/Resolving]
  - Drug interaction [Recovering/Resolving]

NARRATIVE: CASE EVENT DATE: 20180213
